FAERS Safety Report 8469639-0 (Version None)
Quarter: 2012Q2

REPORT INFORMATION
  Report Type: 
  Country: None (occurrence: None)
  Receive Date: 20120626
  Receipt Date: 20120621
  Transmission Date: 20120825
  Serious: Yes (Hospitalization)
  Sender: FDA-Public Use
  Company Number: PHHY2011GB110638

PATIENT
  Age: 32 Year
  Sex: Male
  Weight: 61 kg

DRUGS (16)
  1. MAGNESIUM SULFATE [Concomitant]
  2. VALPROATE SODIUM [Suspect]
     Dosage: 300 MG, BID
     Route: 042
     Dates: start: 20111031, end: 20111103
  3. PABRINEX [Concomitant]
  4. PROPOFOL [Concomitant]
  5. MAGNESIUM SULFATE [Concomitant]
  6. OMEPRAZOLE [Concomitant]
  7. ALFENTANIL [Concomitant]
  8. DOCUSATE [Concomitant]
  9. SENNA-MINT WAF [Concomitant]
  10. VANCOMYCIN [Suspect]
     Dosage: 1000 MG, BID
     Route: 042
     Dates: start: 20111101, end: 20111107
  11. KEPPRA [Suspect]
     Indication: CONVULSION
     Dosage: 250 MG, BID
     Dates: start: 20111103, end: 20111103
  12. CHLORHEXIDINE GLUCONATE [Concomitant]
  13. POLYHEXANIDE [Concomitant]
  14. METOCLOPRAMIDE [Concomitant]
  15. MIDAZOLAM [Concomitant]
  16. FUROSEMIDE [Concomitant]

REACTIONS (9)
  - HEPATITIS [None]
  - TUBULOINTERSTITIAL NEPHRITIS [None]
  - NEUTROPENIA [None]
  - EOSINOPHILIA [None]
  - DRUG RASH WITH EOSINOPHILIA AND SYSTEMIC SYMPTOMS [None]
  - RASH ERYTHEMATOUS [None]
  - NEUTROPHILIA [None]
  - TRANSAMINASES INCREASED [None]
  - RENAL IMPAIRMENT [None]
